FAERS Safety Report 13399121 (Version 2)
Quarter: 2017Q2

REPORT INFORMATION
  Report Type: Spontaneous
  Country: US (occurrence: US)
  Receive Date: 20170404
  Receipt Date: 20170511
  Transmission Date: 20170830
  Serious: No
  Sender: FDA-Public Use
  Company Number: US-ASTRAZENECA-2017SE32338

PATIENT
  Age: 761 Month
  Sex: Female
  Weight: 81.6 kg

DRUGS (2)
  1. ASPIRIN. [Concomitant]
     Active Substance: ASPIRIN
     Indication: MYOCARDIAL INFARCTION
     Dosage: CHEWABLE, UNKNOWN,SINCE BETWEEN 13-MAR-217 TO 15-MAR-2017
     Route: 065
  2. TUDORZA PRESSAIR [Suspect]
     Active Substance: ACLIDINIUM BROMIDE
     Indication: CHRONIC OBSTRUCTIVE PULMONARY DISEASE
     Route: 055
     Dates: start: 201703

REACTIONS (5)
  - Intentional product misuse [Unknown]
  - Candida infection [Unknown]
  - Device malfunction [Unknown]
  - Memory impairment [Unknown]
  - Dementia Alzheimer^s type [Unknown]

NARRATIVE: CASE EVENT DATE: 201703
